FAERS Safety Report 20731390 (Version 4)
Quarter: 2022Q3

REPORT INFORMATION
  Report Type: Spontaneous
  Country: JP (occurrence: JP)
  Receive Date: 20220420
  Receipt Date: 20220915
  Transmission Date: 20221026
  Serious: Yes (Other)
  Sender: FDA-Public Use
  Company Number: JP-Eisai-202200622_LEN-EC_P_1

PATIENT
  Age: 61 Year
  Sex: Female

DRUGS (3)
  1. LENVIMA [Suspect]
     Active Substance: LENVATINIB
     Indication: Endometrial cancer
     Route: 048
     Dates: start: 20220124, end: 2022
  2. LENVIMA [Suspect]
     Active Substance: LENVATINIB
     Dosage: DOSE (ONE-LEVEL DOSE REDUCTION) AND FREQUENCY UNKNOWN
     Route: 048
     Dates: start: 2022, end: 20220516
  3. KEYTRUDA [Suspect]
     Active Substance: PEMBROLIZUMAB
     Indication: Endometrial cancer
     Route: 041
     Dates: start: 20220124, end: 20220516

REACTIONS (2)
  - Interstitial lung disease [Recovered/Resolved]
  - Blood pressure increased [Unknown]

NARRATIVE: CASE EVENT DATE: 20220607
